FAERS Safety Report 8564105-6 (Version None)
Quarter: 2012Q3

REPORT INFORMATION
  Report Type: 
  Country: None (occurrence: None)
  Receive Date: 20120723
  Receipt Date: 20120713
  Transmission Date: 20120928
  Serious: Yes (Other)
  Sender: FDA-Public Use
  Company Number: 201207002

PATIENT
  Age: 54 Year
  Sex: Male

DRUGS (2)
  1. XIAFLEX [Suspect]
     Indication: DUPUYTREN'S CONTRACTURE
     Dosage: 0.58 MG, 1 IN 1 D, INTRALESIONAL
     Route: 026
     Dates: start: 20120411, end: 20120411
  2. ANESTHETICS, LOCAL (ANESTHETICS, LOCAL) [Suspect]
     Indication: ANAESTHESIA
     Dosage: 1 IN 1 D, INTRALESIONAL
     Route: 026
     Dates: start: 20120411, end: 20120411

REACTIONS (2)
  - DERMAL CYST [None]
  - LACERATION [None]
